FAERS Safety Report 15789778 (Version 1)
Quarter: 2018Q4

REPORT INFORMATION
  Report Type: Spontaneous
  Country: US (occurrence: US)
  Receive Date: 20181213
  Receipt Date: 20181213
  Transmission Date: 20190205
  Serious: No
  Sender: FDA-Public Use
  Company Number: None

PATIENT

DRUGS (2)
  1. POTASSIUM CHLORIDE 20MEQ/L IN 1000 ML IN 0.9% SODIUM CHLORIDE [Suspect]
     Active Substance: POTASSIUM CHLORIDE
     Route: 041
  2. POTASSIUM CHLORIDE 20MEQ IN1000ML 5% DEXTROSE + 0.45% SODIUM CHLORIDE [Suspect]
     Active Substance: POTASSIUM CHLORIDE
     Route: 041

REACTIONS (2)
  - Product dispensing error [None]
  - Product appearance confusion [None]
